FAERS Safety Report 6853678-7 (Version None)
Quarter: 2010Q3

REPORT INFORMATION
  Report Type: 
  Country: None (occurrence: None)
  Receive Date: 20100717
  Receipt Date: 20080122
  Transmission Date: 20110219
  Serious: No
  Sender: FDA-Public Use
  Company Number: US-PFIZER INC-2007105377

PATIENT
  Sex: Female
  Weight: 68 kg

DRUGS (1)
  1. CHANTIX [Suspect]
     Indication: SMOKING CESSATION THERAPY
     Route: 048
     Dates: start: 20071101, end: 20071209

REACTIONS (6)
  - FATIGUE [None]
  - HYPERPHAGIA [None]
  - INSOMNIA [None]
  - NIGHTMARE [None]
  - TOBACCO USER [None]
  - WEIGHT INCREASED [None]
